FAERS Safety Report 7618680-6 (Version None)
Quarter: 2011Q3

REPORT INFORMATION
  Report Type: 
  Country: None (occurrence: None)
  Receive Date: 20110718
  Receipt Date: 20110712
  Transmission Date: 20111222
  Serious: Yes (Life-Threatening, Hospitalization)
  Sender: FDA-Public Use
  Company Number: DE-CELGENEUS-062-21880-11070243

PATIENT
  Age: 71 Year
  Sex: Male
  Weight: 89 kg

DRUGS (4)
  1. DEXAMETHASONE [Suspect]
     Indication: MULTIPLE MYELOMA
     Dosage: 20 MILLIGRAM
     Route: 048
     Dates: start: 20110608, end: 20110608
  2. REVLIMID [Suspect]
     Indication: MULTIPLE MYELOMA
     Dosage: 25 MILLIGRAM
     Route: 048
     Dates: start: 20110608, end: 20110628
  3. BONEFOS [Concomitant]
     Indication: MULTIPLE MYELOMA
     Dosage: 1500 MILLIGRAM
     Route: 051
     Dates: start: 20110518
  4. ALLOPURINOL [Concomitant]
     Indication: HYPERURICAEMIA
     Dosage: 300 MILLIGRAM
     Route: 048
     Dates: start: 20110518

REACTIONS (1)
  - MYOPERICARDITIS [None]
